FAERS Safety Report 12700331 (Version 1)
Quarter: 2016Q3

REPORT INFORMATION
  Report Type: Spontaneous
  Country: US (occurrence: US)
  Receive Date: 20160830
  Receipt Date: 20160830
  Transmission Date: 20161109
  Serious: No
  Sender: FDA-Public Use
  Company Number: US-SA-2015SA187786

PATIENT
  Age: 48 Year
  Sex: Male
  Weight: 56.6 kg

DRUGS (2)
  1. SOLU-CORTEF [Concomitant]
     Active Substance: HYDROCORTISONE SODIUM SUCCINATE
     Indication: PREMEDICATION
  2. FABRAZYME [Suspect]
     Active Substance: AGALSIDASE BETA
     Indication: FABRY^S DISEASE
     Route: 041

REACTIONS (4)
  - Chills [Unknown]
  - Hyperhidrosis [Unknown]
  - Abdominal pain [Unknown]
  - Vomiting [Unknown]

NARRATIVE: CASE EVENT DATE: 201501
